FAERS Safety Report 19487921 (Version 1)
Quarter: 2021Q3

REPORT INFORMATION
  Report Type: Spontaneous
  Country: US (occurrence: US)
  Receive Date: 20210702
  Receipt Date: 20210702
  Transmission Date: 20211014
  Serious: Yes (Other)
  Sender: FDA-Public Use
  Company Number: US-SA-2021SA210917

PATIENT
  Sex: Male

DRUGS (23)
  1. VITAMIN D 2000 [Concomitant]
     Active Substance: VITAMIN D NOS
     Dosage: 1000 IU, BID
     Route: 065
  2. LANTUS [Suspect]
     Active Substance: INSULIN GLARGINE
     Indication: DIABETES MELLITUS
     Dosage: 20 IU? IN THE MORNING AND 35 IU?IN THE NIGHT, BID
     Route: 065
  3. PRAVASTATIN SODIUM. [Suspect]
     Active Substance: PRAVASTATIN SODIUM
     Indication: BLOOD CHOLESTEROL
     Dosage: 40 MG, QD
     Route: 048
  4. INSULIN ASPART [Suspect]
     Active Substance: INSULIN ASPART
     Indication: STEROID DIABETES
     Dosage: 4ML ON SLIDING SCALE
     Route: 058
  5. PREDNISONE. [Suspect]
     Active Substance: PREDNISONE
     Indication: PROPHYLAXIS AGAINST TRANSPLANT REJECTION
     Dosage: 10 MG, QD
     Route: 048
  6. GABAPENTIN. [Suspect]
     Active Substance: GABAPENTIN
     Dosage: 300 MG, QID
     Route: 065
  7. ETHAMBUTOL [Suspect]
     Active Substance: ETHAMBUTOL HYDROCHLORIDE
     Dosage: 1200 MG, TID
     Route: 048
  8. BACTRIM BALSAMICO [Concomitant]
     Active Substance: GUAIFENESIN\SULFAMETHOXAZOLE\TRIMETHOPRIM
     Dosage: 1 DF, TID
     Route: 065
  9. APIXABAN [Concomitant]
     Active Substance: APIXABAN
     Indication: CEREBROVASCULAR ACCIDENT
     Dosage: 2.5 MG, BID
     Route: 048
  10. TRESIBA [Concomitant]
     Active Substance: INSULIN DEGLUDEC
     Dosage: UNK UNK, QID
     Route: 065
  11. POTASSIUM CHLORIDE. [Suspect]
     Active Substance: POTASSIUM CHLORIDE
     Indication: ELECTROLYTE SUBSTITUTION THERAPY
     Dosage: 10 MG, QD
     Route: 048
  12. HYPERSAL [Concomitant]
     Active Substance: SODIUM CHLORIDE
     Dosage: 7% 4ML, BID
     Route: 055
  13. VALACICLOVIR [Suspect]
     Active Substance: VALACYCLOVIR HYDROCHLORIDE
     Indication: VIRAL INFECTION
     Dosage: 500 MG, QD
     Route: 048
  14. LASIX [Suspect]
     Active Substance: FUROSEMIDE
     Indication: PULMONARY OEDEMA
     Dosage: 40MG ONCE DAILY AND PRN IF NEEDS ADDITIONAL
     Route: 065
  15. IPRATROPIUM BROMIDE. [Suspect]
     Active Substance: IPRATROPIUM BROMIDE
     Dosage: 0.5MG?2.5MG/3ML, BID
     Route: 065
  16. MYCOBUTIN [Concomitant]
     Active Substance: RIFABUTIN
     Indication: ANTIBIOTIC THERAPY
     Dosage: 500 MG, BID (MORNING AND NIGHT)
     Route: 065
  17. MYCOPHENOLATE MOFETIL. [Suspect]
     Active Substance: MYCOPHENOLATE MOFETIL
     Indication: PROPHYLAXIS AGAINST TRANSPLANT REJECTION
     Dosage: 500 MG, BID
     Route: 065
  18. ALENDRONATE SODIUM. [Suspect]
     Active Substance: ALENDRONATE SODIUM
     Indication: OSTEOPOROSIS
     Dosage: 70MG/75ML, QOW
     Route: 048
  19. AMIODARONE HYDROCHLORIDE. [Suspect]
     Active Substance: AMIODARONE HYDROCHLORIDE
     Indication: ARRHYTHMIA
     Dosage: 100 MG, TWO TABLETS AT BEDTIME
     Route: 048
  20. OMEPRAZOLE. [Suspect]
     Active Substance: OMEPRAZOLE
     Dosage: 40 MG, QD
     Route: 048
  21. LEVOTHYROXINE SODIUM. [Suspect]
     Active Substance: LEVOTHYROXINE SODIUM
     Indication: THYROID HORMONE REPLACEMENT THERAPY
     Dosage: 100 UG, QD
     Route: 048
  22. PROGRAFT [Concomitant]
     Active Substance: TACROLIMUS
     Dosage: 4 MG? IN MORNING AND 3.5 MG? IN NIGHT, BID
     Route: 065
  23. LASIX [Suspect]
     Active Substance: FUROSEMIDE
     Indication: FLUID RETENTION

REACTIONS (9)
  - Fatigue [Unknown]
  - Post procedural complication [Unknown]
  - Mobility decreased [Unknown]
  - Weight decreased [Unknown]
  - Blood glucose decreased [Unknown]
  - Bone graft [Unknown]
  - Productive cough [Unknown]
  - Product prescribing issue [Unknown]
  - Intentional dose omission [Unknown]

NARRATIVE: CASE EVENT DATE: 20210510
